FAERS Safety Report 11696926 (Version 3)
Quarter: 2016Q1

REPORT INFORMATION
  Report Type: Spontaneous
  Country: CA (occurrence: None)
  Receive Date: 20151104
  Receipt Date: 20160127
  Transmission Date: 20160525
  Serious: Yes (Death, Other)
  Sender: FDA-Public Use
  Company Number: CA-MDT-ADR-2015-02076

PATIENT
  Sex: Female

DRUGS (1)
  1. COMPOUNDED BACLOFEN INTRATHECAL 1200 MCG/ML [Suspect]
     Active Substance: BACLOFEN
     Indication: MUSCLE SPASTICITY
     Dosage: 295 MCG/DAY

REACTIONS (2)
  - Respiratory tract infection [None]
  - Respiratory failure [None]
